FAERS Safety Report 8183696-0 (Version None)
Quarter: 2012Q1

REPORT INFORMATION
  Report Type: 
  Country: None (occurrence: None)
  Receive Date: 20120305
  Receipt Date: 20120228
  Transmission Date: 20120608
  Serious: Yes (Other)
  Sender: FDA-Public Use
  Company Number: PHHY2011CA097884

PATIENT
  Age: 8 Year
  Sex: Male

DRUGS (10)
  1. RITALIN-SR [Suspect]
     Dosage: 20 MG, BID, IN MORNING AND IN AFTERNOON
  2. ATOMOXETINE HCL [Concomitant]
     Dosage: 1.2 MG/KG, UNK
  3. RITALIN [Suspect]
     Indication: ATTENTION DEFICIT/HYPERACTIVITY DISORDER
     Dosage: 5 MG, BID- IN MORNING AND AT NOON
  4. RITALIN [Suspect]
     Dosage: 10 MG, BID, IN MORNING AND AT NOON
  5. RITALIN [Suspect]
     Dosage: 20 MG, BID, IN MORNING AND AT NOON
  6. RITALIN [Suspect]
     Indication: ATTENTION DEFICIT/HYPERACTIVITY DISORDER
     Dosage: 36 MG
  7. ATOMOXETINE HCL [Concomitant]
     Indication: ATTENTION DEFICIT/HYPERACTIVITY DISORDER
     Dosage: 0.5 MG/KG,
  8. ATOMOXETINE HCL [Concomitant]
     Dosage: 1.4 MG/KG, UNK
  9. ATOMOXETINE HCL [Concomitant]
     Dosage: 0.8 MG/KG, UNK
  10. RITALIN-SR [Suspect]
     Indication: ATTENTION DEFICIT/HYPERACTIVITY DISORDER
     Dosage: 10 MG, BID, IN MORNING AND IN AFTERNOON

REACTIONS (11)
  - ABNORMAL BEHAVIOUR [None]
  - AGGRESSION [None]
  - DISTURBANCE IN ATTENTION [None]
  - LEARNING DISABILITY [None]
  - IRRITABILITY [None]
  - OPPOSITIONAL DEFIANT DISORDER [None]
  - AFFECT LABILITY [None]
  - ATTENTION DEFICIT/HYPERACTIVITY DISORDER [None]
  - IMPULSIVE BEHAVIOUR [None]
  - CRYING [None]
  - DRUG INEFFECTIVE [None]
